FAERS Safety Report 6724563-6 (Version None)
Quarter: 2010Q2

REPORT INFORMATION
  Report Type: 
  Country: None (occurrence: None)
  Receive Date: 20100513
  Receipt Date: 20100430
  Transmission Date: 20101027
  Serious: Yes (Other)
  Sender: FDA-Public Use
  Company Number: FR-PFIZER INC-2010005904

PATIENT
  Age: 31 Year
  Sex: Male

DRUGS (5)
  1. LYRICA [Suspect]
     Dosage: 50 MG, 1X/DAY
     Dates: start: 20091207
  2. LYRICA [Suspect]
     Dosage: 75 MG, 3X/DAY
     Dates: start: 20091231, end: 20100301
  3. ABACAVIR SULFATE AND LAMIVUDINE [Concomitant]
     Dosage: 600 UNK, 1X/DAY
     Route: 048
     Dates: start: 20090101
  4. NORVIR [Concomitant]
     Dosage: 100 UNK, 1X/DAY
     Route: 048
  5. REYATAZ [Concomitant]
     Dosage: 300 UNK, 1X/DAY
     Route: 048

REACTIONS (1)
  - VIRAL LOAD INCREASED [None]
